FAERS Safety Report 5376401-4 (Version None)
Quarter: 2007Q2

REPORT INFORMATION
  Report Type: 
  Country: None (occurrence: None)
  Receive Date: 20070627
  Receipt Date: 20070627
  Transmission Date: 20071010
  Serious: Yes (Hospitalization)
  Sender: FDA-Public Use
  Company Number: None

PATIENT
  Sex: Male
  Weight: 99.5 kg

DRUGS (5)
  1. DOXORUBICIN HYDROCHLORIDE [Suspect]
     Dosage: 116 MG
  2. GEMCITABINE HCL [Suspect]
     Dosage: 3435 MG
  3. LISINIPRIL [Concomitant]
  4. POTASSIUM ACETATE [Concomitant]
  5. LASIX [Concomitant]

REACTIONS (15)
  - ATRIAL FIBRILLATION [None]
  - CARDIAC FAILURE CONGESTIVE [None]
  - CARDIOMYOPATHY [None]
  - DILATATION VENTRICULAR [None]
  - EJECTION FRACTION DECREASED [None]
  - HYPERTENSION [None]
  - INSOMNIA [None]
  - LEFT VENTRICULAR DYSFUNCTION [None]
  - MITRAL VALVE INCOMPETENCE [None]
  - MULTIPLE GATED ACQUISITION SCAN ABNORMAL [None]
  - OEDEMA PERIPHERAL [None]
  - ORTHOPNOEA [None]
  - RENAL DISORDER [None]
  - TACHYCARDIA [None]
  - TRICUSPID VALVE INCOMPETENCE [None]
